FAERS Safety Report 10187228 (Version 2)
Quarter: 2014Q2

REPORT INFORMATION
  Report Type: Spontaneous
  Country: IT (occurrence: IT)
  Receive Date: 20140522
  Receipt Date: 20140527
  Transmission Date: 20141212
  Serious: Yes (Hospitalization)
  Sender: FDA-Public Use
  Company Number: PHHY2014IT059276

PATIENT
  Age: 65 Year
  Sex: Female

DRUGS (10)
  1. VOLTAREN [Suspect]
     Indication: ARTHRALGIA
     Dosage: 1 DF, DAILY
     Route: 030
     Dates: start: 20140426, end: 20140429
  2. LASIX [Suspect]
     Indication: HYPERTENSION
     Dosage: 1 DF, DAILY
     Route: 048
     Dates: start: 20140101, end: 20140429
  3. ALLOPURINOL [Concomitant]
     Dosage: UNK UKN, UNK
  4. CLODRONATE DISODIUM [Concomitant]
     Dosage: UNK UKN, UNK
  5. PANTORC [Concomitant]
     Dosage: UNK UKN, UNK
  6. KARVEA [Concomitant]
     Dosage: UNK UKN, UNK
     Route: 048
  7. KCL RETARD ZYMA [Concomitant]
     Dosage: UNK UKN, UNK
     Route: 048
  8. ARIXTRA [Concomitant]
     Dosage: UNK UKN, UNK
  9. DIBASE [Concomitant]
     Dosage: UNK UKN, UNK
     Route: 048
  10. KANRENOL [Concomitant]
     Dosage: UNK UKN, UNK
     Route: 048

REACTIONS (3)
  - Hepatorenal syndrome [Recovering/Resolving]
  - Back pain [Recovering/Resolving]
  - Hypotension [Recovering/Resolving]
